FAERS Safety Report 4930798-5 (Version None)
Quarter: 2006Q1

REPORT INFORMATION
  Report Type: 
  Country: None (occurrence: None)
  Receive Date: 20060227
  Receipt Date: 20050210
  Transmission Date: 20060701
  Serious: Yes (Death)
  Sender: FDA-Public Use
  Company Number: 222347

PATIENT
  Age: 39 Year
  Sex: Male

DRUGS (1)
  1. AVASTIN [Suspect]

REACTIONS (3)
  - LARGE INTESTINE PERFORATION [None]
  - PERITONITIS [None]
  - SEPTIC SHOCK [None]
